FAERS Safety Report 5245316-4 (Version None)
Quarter: 2007Q1

REPORT INFORMATION
  Report Type: 
  Country: None (occurrence: None)
  Receive Date: 20070223
  Receipt Date: 20070219
  Transmission Date: 20070707
  Serious: Yes (Death)
  Sender: FDA-Public Use
  Company Number: AU-GLAXOSMITHKLINE-B0458122A

PATIENT
  Sex: Male

DRUGS (5)
  1. AVANDAMET [Suspect]
     Route: 048
     Dates: start: 20061201
  2. LIPITOR [Concomitant]
     Dosage: 40MG PER DAY
  3. GLYADE [Concomitant]
     Dosage: 80MG TWICE PER DAY
  4. DILATREND [Concomitant]
     Dosage: 25MG TWICE PER DAY
  5. IMDUR [Concomitant]
     Dosage: 60MG PER DAY

REACTIONS (5)
  - BLOOD PRESSURE DECREASED [None]
  - CIRCULATORY COLLAPSE [None]
  - DEATH [None]
  - PAIN [None]
  - SYNCOPE [None]
